FAERS Safety Report 5614331-0 (Version None)
Quarter: 2008Q1

REPORT INFORMATION
  Report Type: 
  Country: None (occurrence: None)
  Receive Date: 20080205
  Receipt Date: 20080129
  Transmission Date: 20080703
  Serious: Yes (Other)
  Sender: FDA-Public Use
  Company Number: US-SANOFI-SYNTHELABO-A03200800039

PATIENT
  Sex: Female
  Weight: 61.2 kg

DRUGS (3)
  1. EXCEDRIN (MIGRAINE) [Interacting]
     Indication: HEADACHE
     Dosage: 3 DOSES 24 HOURS PRIOR AS NEEDED
     Route: 065
  2. AMBIEN [Suspect]
     Indication: INSOMNIA
     Route: 048
     Dates: start: 20070212, end: 20070902
  3. FOSAMAX [Concomitant]
     Indication: OSTEOARTHRITIS
     Route: 048
     Dates: start: 20020101

REACTIONS (5)
  - AMNESIA [None]
  - DRUG LEVEL ABOVE THERAPEUTIC [None]
  - HYPERSENSITIVITY [None]
  - IMPAIRED DRIVING ABILITY [None]
  - SOMNAMBULISM [None]
